FAERS Safety Report 8411823 (Version 4)
Quarter: 2013Q1

REPORT INFORMATION
  Report Type: Spontaneous
  Country: CA (occurrence: CA)
  Receive Date: 20120217
  Receipt Date: 20130125
  Transmission Date: 20140127
  Serious: Yes (Other)
  Sender: FDA-Public Use
  Company Number: PHHY2011CA74310

PATIENT
  Sex: Female

DRUGS (1)
  1. ZOMETA [Suspect]
     Indication: BREAST CANCER
     Dosage: 4 MG, EVERY 6 MONTHS
     Route: 042
     Dates: start: 20081216

REACTIONS (10)
  - Thyroid disorder [Unknown]
  - Limb discomfort [Unknown]
  - Injection site extravasation [Unknown]
  - Crying [Unknown]
  - Pain [Unknown]
  - Injection site pain [Unknown]
  - Injection site swelling [Unknown]
  - Blood pressure increased [Unknown]
  - Heart rate increased [Unknown]
  - Bone pain [Unknown]
